FAERS Safety Report 15724824 (Version 1)
Quarter: 2018Q4

REPORT INFORMATION
  Report Type: Spontaneous
  Country: US (occurrence: US)
  Receive Date: 20181214
  Receipt Date: 20181214
  Transmission Date: 20190205
  Serious: Yes (Other)
  Sender: FDA-Public Use
  Company Number: US-TEVA-2018-US-986143

PATIENT
  Sex: Male

DRUGS (6)
  1. LOSARATAN POTASSIUM [Suspect]
     Active Substance: LOSARTAN POTASSIUM
  2. TRIAMTERENE/HYDROCHLOROTHIAZIDE [Suspect]
     Active Substance: HYDROCHLOROTHIAZIDE\TRIAMTERENE
     Dosage: TRIAMTERENE 375MG AND HYDROCHLOROTHIAZIDE 25MG
  3. AMLODIPINE [Suspect]
     Active Substance: AMLODIPINE BESYLATE
  4. NORSVASC [Suspect]
     Active Substance: AMLODIPINE BESYLATE
  5. DYAZIDE [Suspect]
     Active Substance: HYDROCHLOROTHIAZIDE\TRIAMTERENE
     Dosage: TRIAMTERENE 375MG AND HYDROCHLOROTHIAZIDE 25MG
  6. COZAAR [Suspect]
     Active Substance: LOSARTAN POTASSIUM

REACTIONS (1)
  - Prostate cancer [Unknown]
